FAERS Safety Report 10090599 (Version 2)
Quarter: 2014Q2

REPORT INFORMATION
  Report Type: Spontaneous
  Country: US (occurrence: US)
  Receive Date: 20140421
  Receipt Date: 20140509
  Transmission Date: 20141212
  Serious: Yes (Hospitalization, Other)
  Sender: FDA-Public Use
  Company Number: US-BAYER-2014-057241

PATIENT
  Age: 26 Year
  Sex: Female

DRUGS (4)
  1. YASMIN [Suspect]
     Route: 048
  2. ZITHROMAX [Concomitant]
  3. TETANUS VACCINE [TETANUS VACCINE] [Concomitant]
  4. PROZAC [Concomitant]

REACTIONS (2)
  - Deep vein thrombosis [Recovering/Resolving]
  - Subclavian vein thrombosis [None]
